FAERS Safety Report 15821069 (Version 2)
Quarter: 2019Q1

REPORT INFORMATION
  Report Type: Spontaneous
  Country: GB (occurrence: GB)
  Receive Date: 20190114
  Receipt Date: 20190129
  Transmission Date: 20190417
  Serious: Yes (Hospitalization)
  Sender: FDA-Public Use
  Company Number: GB-MYLANLABS-2019M1003228

PATIENT
  Age: 90 Year
  Sex: Female

DRUGS (12)
  1. LANSOPRAZOLE. [Suspect]
     Active Substance: LANSOPRAZOLE
     Indication: PRODUCT USED FOR UNKNOWN INDICATION
     Dosage: 15 MILLIGRAM, QD
  2. FUROSEMIDE. [Suspect]
     Active Substance: FUROSEMIDE
     Indication: PRODUCT USED FOR UNKNOWN INDICATION
     Dosage: MORNING
  3. ACETYLSALICYLIC ACID [Concomitant]
     Active Substance: ASPIRIN
     Dosage: 75 MILLIGRAM, QD
  4. PERINDOPRIL [Concomitant]
     Active Substance: PERINDOPRIL
     Dosage: MORNING BEFORE FOOD
  5. PARACETAMOL [Concomitant]
     Active Substance: ACETAMINOPHEN
     Dosage: 1 OR 2 4 TIMES/DAY
  6. FOLIC ACID. [Concomitant]
     Active Substance: FOLIC ACID
     Dosage: 5 MILLIGRAM, QD
  7. DOXYCYCLINE. [Concomitant]
     Active Substance: DOXYCYCLINE
     Dosage: TWO TO BE TAKEN ON THE FIRST DAY
  8. BETAHISTINE [Concomitant]
     Active Substance: BETAHISTINE
     Dosage: 1-2 THREE TIMES DAILY
  9. CITALOPRAM [Suspect]
     Active Substance: CITALOPRAM HYDROBROMIDE
     Indication: PRODUCT USED FOR UNKNOWN INDICATION
     Dosage: 10 MILLIGRAM, QD
  10. METFORMIN [Concomitant]
     Active Substance: METFORMIN HYDROCHLORIDE
     Dosage: WITH EVENING MEAL
  11. CEFALEXIN [Concomitant]
     Active Substance: CEPHALEXIN
     Dosage: 1500 MILLIGRAM, QD
  12. LATANOPROST. [Concomitant]
     Active Substance: LATANOPROST
     Dosage: ONE DROP TO BE USED AT NIGHT IN BOTH EYES, 50 UG/ML
     Route: 047

REACTIONS (1)
  - Hyponatraemia [Recovered/Resolved]
